FAERS Safety Report 24087042 (Version 1)
Quarter: 2024Q3

REPORT INFORMATION
  Report Type: Spontaneous
  Country: ES (occurrence: ES)
  Receive Date: 20240713
  Receipt Date: 20240713
  Transmission Date: 20241017
  Serious: Yes (Other)
  Sender: AUROBINDO
  Company Number: ES-MLMSERVICE-20240627-PI115363-00082-1

PATIENT
  Age: 2 Decade
  Sex: Female

DRUGS (2)
  1. CARBOPLATIN [Suspect]
     Active Substance: CARBOPLATIN
     Indication: Alveolar rhabdomyosarcoma
     Dosage: 560 MILLIGRAM/SQ. METER, ONCE A DAY
     Route: 065
  2. IRINOTECAN [Suspect]
     Active Substance: IRINOTECAN
     Indication: Alveolar rhabdomyosarcoma
     Dosage: UNK
     Route: 065

REACTIONS (3)
  - Second primary malignancy [Unknown]
  - Acquired gene mutation [Unknown]
  - Acute myeloid leukaemia [Unknown]
